FAERS Safety Report 18267364 (Version 1)
Quarter: 2020Q3

REPORT INFORMATION
  Report Type: Spontaneous
  Country: US (occurrence: US)
  Receive Date: 20200915
  Receipt Date: 20200915
  Transmission Date: 20201103
  Serious: Yes (Hospitalization)
  Sender: FDA-Public Use
  Company Number: None

PATIENT
  Age: 60 Year
  Sex: Female

DRUGS (11)
  1. VICTOZA INJ 18MG/3ML [Concomitant]
     Dates: start: 20200327
  2. DULOXETINE CAP 60MG [Concomitant]
     Dates: start: 20200327
  3. BASAGLAR INJ 100 UNIT [Concomitant]
     Dates: start: 20200327
  4. REPATHA [Suspect]
     Active Substance: EVOLOCUMAB
     Dosage: ?          OTHER FREQUENCY:ONCE Q 2WEEKS;?
     Route: 058
     Dates: start: 20200328
  5. IRBESARTAN TAB 150MG [Concomitant]
     Dates: start: 20200327
  6. GABAPENTIN TAB 600MG [Concomitant]
     Dates: start: 20200327
  7. METOPROLOL TAB 37.5 [Concomitant]
     Dates: start: 20200327
  8. MELOXICAM 15MG [Concomitant]
     Active Substance: MELOXICAM
     Dates: start: 20200327
  9. ADMELOG INJ 100U/ML [Concomitant]
     Dates: start: 20200327
  10. XARELTO [Concomitant]
     Active Substance: RIVAROXABAN
     Dates: start: 20200327
  11. ZETIA [Concomitant]
     Active Substance: EZETIMIBE
     Dates: start: 20200327

REACTIONS (1)
  - Cardiac operation [None]

NARRATIVE: CASE EVENT DATE: 20200914
